FAERS Safety Report 8420495-6 (Version None)
Quarter: 2012Q2

REPORT INFORMATION
  Report Type: 
  Country: None (occurrence: None)
  Receive Date: 20120608
  Receipt Date: 20120528
  Transmission Date: 20120825
  Serious: Yes (Hospitalization)
  Sender: FDA-Public Use
  Company Number: IT-AMGEN-ITASP2012034239

PATIENT
  Age: 42 Year
  Sex: Male

DRUGS (3)
  1. REBETOL [Concomitant]
     Dosage: 1200 MG, UNK
     Route: 048
  2. ENBREL [Suspect]
     Indication: PSORIATIC ARTHROPATHY
     Dosage: 50 MG, WEEKLY
     Route: 058
     Dates: start: 20110401, end: 20120518
  3. PEGINTERFERON ALFA-2B [Concomitant]
     Dosage: 120 UG, UNK
     Route: 058

REACTIONS (3)
  - WEIGHT DECREASED [None]
  - PYREXIA [None]
  - LYMPHADENOPATHY [None]
